FAERS Safety Report 17962996 (Version 1)
Quarter: 2020Q2

REPORT INFORMATION
  Report Type: Spontaneous
  Country: US (occurrence: US)
  Receive Date: 20200630
  Receipt Date: 20200630
  Transmission Date: 20200714
  Serious: Yes (Other)
  Sender: FDA-Public Use
  Company Number: None

PATIENT
  Age: 65 Year
  Sex: Female

DRUGS (14)
  1. POTASSIUM CHL ER [Concomitant]
  2. TRAZODONE [Concomitant]
     Active Substance: TRAZODONE HYDROCHLORIDE
  3. PANTOPRAZOLE [Concomitant]
     Active Substance: PANTOPRAZOLE
  4. SUPER B COMPLEX MAXI [Concomitant]
  5. VITAMIN D3 [Concomitant]
     Active Substance: CHOLECALCIFEROL
  6. FUROSEMIDE. [Concomitant]
     Active Substance: FUROSEMIDE
  7. ROSUVASTATIN. [Concomitant]
     Active Substance: ROSUVASTATIN
  8. AMBRISENTAN [Suspect]
     Active Substance: AMBRISENTAN
     Indication: PULMONARY ARTERIAL HYPERTENSION
     Route: 048
  9. LORAZEPAM. [Concomitant]
     Active Substance: LORAZEPAM
  10. ABILIFY [Concomitant]
     Active Substance: ARIPIPRAZOLE
  11. PREDNISONE. [Concomitant]
     Active Substance: PREDNISONE
  12. BREO ELLIPTA [Concomitant]
     Active Substance: FLUTICASONE FUROATE\VILANTEROL TRIFENATATE
  13. CALCIUM 600 + D3 [Concomitant]
  14. TEMAZEPAM. [Concomitant]
     Active Substance: TEMAZEPAM

REACTIONS (4)
  - Therapy non-responder [None]
  - Dyspnoea [None]
  - Dizziness [None]
  - Oxygen saturation decreased [None]
